FAERS Safety Report 13165789 (Version 1)
Quarter: 2017Q1

REPORT INFORMATION
  Report Type: Spontaneous
  Country: US (occurrence: US)
  Receive Date: 20170126
  Receipt Date: 20170126
  Transmission Date: 20170428
  Serious: Yes (Hospitalization)
  Sender: FDA-Public Use
  Company Number: None

PATIENT
  Age: 69 Year
  Sex: Female
  Weight: 75.5 kg

DRUGS (1)
  1. METFORMIN [Suspect]
     Active Substance: METFORMIN HYDROCHLORIDE
     Indication: DIABETES MELLITUS
     Dosage: MG BID PO
     Route: 048
     Dates: start: 20120821, end: 20130730

REACTIONS (12)
  - Headache [None]
  - Lactic acidosis [None]
  - Hypoperfusion [None]
  - Diarrhoea [None]
  - Dizziness [None]
  - Syncope [None]
  - Tremor [None]
  - Tunnel vision [None]
  - Hypotension [None]
  - Asthenia [None]
  - Muscle spasms [None]
  - Therapy change [None]

NARRATIVE: CASE EVENT DATE: 20130721
